FAERS Safety Report 25021011 (Version 1)
Quarter: 2025Q1

REPORT INFORMATION
  Report Type: Spontaneous
  Country: CN (occurrence: CN)
  Receive Date: 20250227
  Receipt Date: 20250227
  Transmission Date: 20250408
  Serious: Yes (Other)
  Sender: BOEHRINGER INGELHEIM
  Company Number: CN-BoehringerIngelheim-2025-BI-011121

PATIENT
  Age: 5 Year
  Sex: Male
  Weight: 17.800 kg

DRUGS (7)
  1. ATROVENT [Suspect]
     Active Substance: IPRATROPIUM BROMIDE
     Indication: Pneumonia
     Dates: start: 20230729, end: 20230802
  2. PULMICORT RESPULES [Suspect]
     Active Substance: BUDESONIDE
     Indication: Pneumonia
     Dosage: SUSPENSION
     Dates: start: 20230729, end: 20230802
  3. ALBUTEROL SULFATE [Suspect]
     Active Substance: ALBUTEROL SULFATE
     Indication: Pneumonia
     Dates: start: 20230729, end: 20230802
  4. CEFTRIAXONE SODIUM [Suspect]
     Active Substance: CEFTRIAXONE SODIUM
     Indication: Pneumonia
     Dates: start: 20230729, end: 20230802
  5. IBUPROFEN [Concomitant]
     Active Substance: IBUPROFEN
     Indication: Pneumonia
     Dosage: SUSPENSION
     Dates: start: 20230729, end: 20230731
  6. DEXTROSE\SODIUM CHLORIDE [Concomitant]
     Active Substance: DEXTROSE\SODIUM CHLORIDE
     Indication: Drug therapy
     Dates: start: 20230729, end: 20230802
  7. Azithromycin for Suspension [Concomitant]
     Indication: Pneumonia
     Dosage: SUSPENSION
     Dates: start: 20230801, end: 20230802

REACTIONS (9)
  - Intracranial infection [Recovering/Resolving]
  - Pruritus [Recovered/Resolved]
  - Swelling of eyelid [Recovered/Resolved]
  - Hypersensitivity [Recovered/Resolved]
  - Periorbital haematoma [Recovered/Resolved]
  - Rash pruritic [Recovering/Resolving]
  - Tremor [Recovering/Resolving]
  - Indifference [Recovering/Resolving]
  - Asthenia [Recovering/Resolving]

NARRATIVE: CASE EVENT DATE: 20230801
